FAERS Safety Report 5387701-6 (Version None)
Quarter: 2007Q3

REPORT INFORMATION
  Report Type: 
  Country: None (occurrence: None)
  Receive Date: 20070712
  Receipt Date: 20070712
  Transmission Date: 20080115
  Serious: Yes (Hospitalization)
  Sender: FDA-Public Use
  Company Number: None

PATIENT
  Sex: Female
  Weight: 118 kg

DRUGS (3)
  1. CISPLATIN [Suspect]
     Dosage: 100 MG
  2. DOXORUBICIN HYDROCHLORIDE [Suspect]
     Dosage: 60 MG
  3. TAXOL [Suspect]
     Dosage: 250 MG

REACTIONS (5)
  - BLOOD MAGNESIUM ABNORMAL [None]
  - BLOOD POTASSIUM DECREASED [None]
  - DIARRHOEA [None]
  - HAEMATOCRIT DECREASED [None]
  - NAUSEA [None]
